FAERS Safety Report 19439654 (Version 2)
Quarter: 2021Q2

REPORT INFORMATION
  Report Type: Spontaneous
  Country: JP (occurrence: JP)
  Receive Date: 20210620
  Receipt Date: 20210630
  Transmission Date: 20210717
  Serious: Yes (Other)
  Sender: FDA-Public Use
  Company Number: JP-JNJFOC-20210627521

PATIENT
  Age: 48 Year
  Sex: Male
  Weight: 75 kg

DRUGS (7)
  1. OXAROL [Concomitant]
     Active Substance: MAXACALCITOL
     Indication: PSORIASIS
     Dosage: 60G/2 MONTHS
     Route: 003
     Dates: start: 20190711
  2. MARDUOX [Concomitant]
     Active Substance: BETAMETHASONE BUTYRATE PROPIONATE\MAXACALCITOL
     Indication: PSORIASIS
     Dosage: 60G/2 MONTHS
     Dates: start: 20190306
  3. ALESION [Concomitant]
     Active Substance: EPINASTINE HYDROCHLORIDE
     Indication: PRURITUS
     Dosage: PERORAL MEDICINE
     Route: 048
     Dates: start: 20191211
  4. METHADERM [Concomitant]
     Active Substance: DEXAMETHASONE DIPROPIONATE
     Indication: PSORIASIS
     Dosage: 40G/2 MONTHS
     Route: 061
     Dates: start: 20181017
  5. TREMFYA [Suspect]
     Active Substance: GUSELKUMAB
  6. TREMFYA [Suspect]
     Active Substance: GUSELKUMAB
     Indication: PSORIASIS
     Route: 058
     Dates: start: 20190919
  7. TREMFYA [Suspect]
     Active Substance: GUSELKUMAB

REACTIONS (1)
  - COVID-19 [Recovered/Resolved]

NARRATIVE: CASE EVENT DATE: 20210423
